FAERS Safety Report 23572376 (Version 1)
Quarter: 2024Q1

REPORT INFORMATION
  Report Type: Spontaneous
  Country: US (occurrence: US)
  Receive Date: 20240227
  Receipt Date: 20240227
  Transmission Date: 20240409
  Serious: No
  Sender: FDA-Public Use
  Company Number: US-AVADEL CNS PHARMACEUTICALS, LLC-2024AVA00069

PATIENT
  Age: 53 Year
  Sex: Female

DRUGS (2)
  1. LUMRYZ [Suspect]
     Active Substance: SODIUM OXYBATE
     Indication: Narcolepsy
     Dosage: 9 G, 1X/DAY, NIGHTLY
     Route: 048
     Dates: start: 20231014, end: 20240111
  2. LUMRYZ [Suspect]
     Active Substance: SODIUM OXYBATE
     Dosage: HALF OF A PACKET NIGHTLY
     Route: 048
     Dates: start: 20240111

REACTIONS (7)
  - Ear infection [Not Recovered/Not Resolved]
  - Feeling abnormal [Unknown]
  - Fatigue [Unknown]
  - Vertigo [Unknown]
  - Migraine [Unknown]
  - Wrong technique in product usage process [Not Recovered/Not Resolved]
  - Middle insomnia [Recovered/Resolved]

NARRATIVE: CASE EVENT DATE: 20231215
